FAERS Safety Report 6356644-3 (Version None)
Quarter: 2009Q3

REPORT INFORMATION
  Report Type: 
  Country: None (occurrence: None)
  Receive Date: 20090910
  Receipt Date: 20090910
  Transmission Date: 20100115
  Serious: Yes (Disabling)
  Sender: FDA-Public Use
  Company Number: None

PATIENT
  Age: 75 Year
  Sex: Female
  Weight: 64.4108 kg

DRUGS (25)
  1. RANEXA [Suspect]
     Indication: ANGINA PECTORIS
     Dosage: 1000MG BID PO
     Route: 048
     Dates: start: 20090115, end: 20090815
  2. ASPIRIN [Concomitant]
  3. CARVEDILOL [Concomitant]
  4. CLOPIDOGREL BISULFATE [Concomitant]
  5. PLAVIX [Concomitant]
  6. FOLIC ACID [Concomitant]
  7. ISOSORBIDE MONONITRATE [Concomitant]
  8. IMDUR [Concomitant]
  9. LEVOTHYROXINE SODIUM [Concomitant]
  10. SYNTHROID [Concomitant]
  11. LORAZEPAM [Concomitant]
  12. ATIVAN [Concomitant]
  13. LOSARTAN POTASSIUM [Concomitant]
  14. COZAAR [Concomitant]
  15. MULTI-VITAMINS [Concomitant]
  16. NITROGLYCERIN SUBLINGUAL [Concomitant]
  17. SUBLINGUAL [Concomitant]
  18. SUBLINGUAL [Concomitant]
  19. PANTOPRAZOLE SODIUM [Concomitant]
  20. PROTONIX [Concomitant]
  21. PRAVASTATIN SODIUM [Concomitant]
  22. RANOLAZINE [Concomitant]
  23. RANEXA [Concomitant]
  24. VENLAFAXINE HCL [Concomitant]
  25. EFFEXOR XR [Concomitant]

REACTIONS (4)
  - FALL [None]
  - HYPONATRAEMIA [None]
  - MENTAL STATUS CHANGES [None]
  - UNEVALUABLE EVENT [None]
